FAERS Safety Report 8210338-8 (Version None)
Quarter: 2012Q1

REPORT INFORMATION
  Report Type: 
  Country: None (occurrence: None)
  Receive Date: 20120314
  Receipt Date: 20120224
  Transmission Date: 20120608
  Serious: Yes (Hospitalization)
  Sender: FDA-Public Use
  Company Number: JP-ASTRAZENECA-2012SE16631

PATIENT
  Age: 40 Year
  Sex: Male
  Weight: 101 kg

DRUGS (8)
  1. CARVEDILOL [Suspect]
     Indication: MYOCARDIAL INFARCTION
     Route: 048
     Dates: start: 20120215, end: 20120221
  2. CANDESARTAN CILEXETIL [Suspect]
     Route: 048
     Dates: start: 20120202, end: 20120221
  3. LIPITOR [Suspect]
     Indication: MYOCARDIAL INFARCTION
     Route: 048
     Dates: start: 20120202, end: 20120221
  4. LANSOPRAZOLE [Suspect]
     Indication: MYOCARDIAL INFARCTION
     Route: 048
     Dates: start: 20120202, end: 20120221
  5. PLAVIX [Suspect]
     Indication: MYOCARDIAL INFARCTION
     Route: 048
     Dates: start: 20120202, end: 20120221
  6. ASPIRIN [Suspect]
     Indication: MYOCARDIAL INFARCTION
     Route: 048
     Dates: start: 20120202
  7. CARVEDILOL [Suspect]
     Route: 048
     Dates: start: 20120222, end: 20120223
  8. SIGMART [Suspect]
     Indication: MYOCARDIAL INFARCTION
     Route: 048
     Dates: start: 20120202, end: 20120221

REACTIONS (1)
  - TOXIC SKIN ERUPTION [None]
